FAERS Safety Report 8573703-5 (Version None)
Quarter: 2012Q3

REPORT INFORMATION
  Report Type: 
  Country: None (occurrence: None)
  Receive Date: 20120806
  Receipt Date: 20120731
  Transmission Date: 20120928
  Serious: Yes (Death, Hospitalization)
  Sender: FDA-Public Use
  Company Number: US-GLAXOSMITHKLINE-A0983422A

PATIENT
  Age: 35 Year
  Sex: Male
  Weight: 152.3 kg

DRUGS (11)
  1. ALBUTEROL [Concomitant]
  2. LOTENSIN [Concomitant]
  3. CARVEDILOL [Concomitant]
  4. SINGULAIR [Concomitant]
  5. IMDUR [Concomitant]
  6. ALDACTONE [Concomitant]
  7. HYDRALAZINE HCL [Concomitant]
  8. FLUTICASONE PROPIONATE [Suspect]
     Indication: ASTHMA
     Dosage: 1PUFF TWICE PER DAY
     Route: 055
     Dates: end: 20100101
  9. LANOXIN [Concomitant]
  10. LASIX [Concomitant]
  11. DILTIAZEM [Concomitant]

REACTIONS (4)
  - CARDIO-RESPIRATORY ARREST [None]
  - RESPIRATORY FAILURE [None]
  - DEATH [None]
  - ASTHMA [None]
